FAERS Safety Report 9227168 (Version 1)
Quarter: 2013Q2

REPORT INFORMATION
  Report Type: Spontaneous
  Country: US (occurrence: None)
  Receive Date: 20130411
  Receipt Date: 20130411
  Transmission Date: 20140414
  Serious: No
  Sender: FDA-Public Use
  Company Number: None

PATIENT
  Age: 89 Year
  Sex: Male

DRUGS (7)
  1. XTANDI [Suspect]
     Indication: PROSTATE CANCER
     Dosage: 4 DOSES QD PO
     Route: 048
  2. IMDUR [Concomitant]
  3. CITRACAL [Concomitant]
  4. PLAVIX [Concomitant]
  5. SERTRALINE [Concomitant]
  6. CRESTOR [Concomitant]
  7. METOPROLOL ER [Concomitant]

REACTIONS (2)
  - Prostatic specific antigen increased [None]
  - Drug ineffective [None]
